FAERS Safety Report 8659076 (Version 5)
Quarter: 2012Q4

REPORT INFORMATION
  Report Type: 
  Country: JP (occurrence: JP)
  Receive Date: 20120710
  Receipt Date: 20121105
  Transmission Date: 20130627
  Serious: Yes (Life-Threatening, Hospitalization, Other)
  Sender: FDA-Public Use
  Company Number: JP-ABBOTT-12P-087-0954577-00

PATIENT
  Age: 69 Year
  Sex: Female
  Weight: 45.5 kg

DRUGS (8)
  1. CLARITH [Suspect]
     Indication: NASOPHARYNGITIS
     Route: 048
     Dates: start: 20110506
  2. LOXONIN [Suspect]
     Indication: NASOPHARYNGITIS
     Route: 048
     Dates: start: 20110506
  3. LOXONIN [Suspect]
     Indication: HEADACHE
  4. COLDRIN [Suspect]
     Indication: NASOPHARYNGITIS
     Route: 048
     Dates: start: 20110506
  5. JUZENTAIHOTO [Concomitant]
     Indication: ISCHAEMIA
     Route: 048
     Dates: start: 20100721
  6. ROKUMI-GAN [Concomitant]
     Indication: HYPERTONIC BLADDER
     Route: 048
     Dates: start: 20100526
  7. VESICARE [Concomitant]
     Indication: HYPERTONIC BLADDER
     Route: 048
     Dates: start: 20080312
  8. MAGLAX [Concomitant]
     Indication: CONSTIPATION
     Route: 048
     Dates: start: 20100203, end: 20111005

REACTIONS (6)
  - Drug-induced liver injury [Recovering/Resolving]
  - Serum ferritin increased [Recovering/Resolving]
  - Aphthous stomatitis [Recovering/Resolving]
  - Nausea [Unknown]
  - Vomiting [Unknown]
  - Decreased appetite [Unknown]
